FAERS Safety Report 21103534 (Version 2)
Quarter: 2022Q3

REPORT INFORMATION
  Report Type: Spontaneous
  Country: BG (occurrence: BG)
  Receive Date: 20220720
  Receipt Date: 20220731
  Transmission Date: 20221027
  Serious: Yes (Other)
  Sender: FDA-Public Use
  Company Number: BG-NOVARTISPH-NVSC2022BG163463

PATIENT
  Age: 69 Year
  Sex: Male

DRUGS (4)
  1. DABRAFENIB [Suspect]
     Active Substance: DABRAFENIB
     Indication: Malignant melanoma stage III
     Dosage: 150 MG, BID
     Route: 065
     Dates: start: 20211112
  2. DABRAFENIB [Suspect]
     Active Substance: DABRAFENIB
     Dosage: 75 MG, BID (RE-INITIATED IN REDUCED DOSAGE)
     Route: 065
     Dates: start: 20220111
  3. TRAMETINIB [Suspect]
     Active Substance: TRAMETINIB
     Indication: Malignant melanoma stage III
     Dosage: 2 MG, QD
     Route: 065
     Dates: start: 20211112
  4. TRAMETINIB [Suspect]
     Active Substance: TRAMETINIB
     Dosage: 2 MG, QD (RE-INITIATED IN REDUCED DOSAGE)
     Route: 065
     Dates: start: 20220111

REACTIONS (1)
  - Electrocardiogram QT prolonged [Recovered/Resolved]

NARRATIVE: CASE EVENT DATE: 20211213
